FAERS Safety Report 6723454-4 (Version None)
Quarter: 2010Q2

REPORT INFORMATION
  Report Type: 
  Country: None (occurrence: None)
  Receive Date: 20100513
  Receipt Date: 20100511
  Transmission Date: 20101027
  Serious: Yes (Death, Hospitalization, Other)
  Sender: FDA-Public Use
  Company Number: PHHY2009GB31992

PATIENT
  Sex: Male

DRUGS (10)
  1. CLOZARIL [Suspect]
     Indication: SCHIZOPHRENIA
     Dosage: UNK
     Route: 048
     Dates: start: 19981203
  2. CLOZARIL [Suspect]
     Dosage: 200 MG, UNK
     Route: 048
  3. CLOZARIL [Suspect]
     Dosage: 100 MG, UNK
     Dates: start: 20090904
  4. CLOZARIL [Suspect]
     Dosage: 200 MG, UNK
     Route: 048
     Dates: end: 20100415
  5. FLUOXETINE [Concomitant]
     Indication: DEPRESSION
     Dosage: 20 MG
     Route: 048
  6. LAMOTRIGINE [Concomitant]
     Dosage: 300 MG, BID
     Route: 048
  7. KEPPRA [Concomitant]
     Dosage: 750 MG, BID
     Route: 048
  8. DEXAMETHASONE [Concomitant]
     Dosage: 4 MG DAILY
     Route: 048
  9. TEMOZOLOMIDE [Concomitant]
     Indication: ASTROCYTOMA
     Dosage: 4 WEEK CYCLE
  10. ANTIPSYCHOTICS [Concomitant]
     Indication: SCHIZOPHRENIA

REACTIONS (9)
  - ASPHYXIA [None]
  - ASTROCYTOMA [None]
  - BRAIN OPERATION [None]
  - CHEST DISCOMFORT [None]
  - DYSPHAGIA [None]
  - DYSPNOEA [None]
  - EPILEPSY [None]
  - MALAISE [None]
  - PNEUMONIA [None]
